FAERS Safety Report 18642576 (Version 1)
Quarter: 2020Q4

REPORT INFORMATION
  Report Type: Spontaneous
  Country: US (occurrence: US)
  Receive Date: 20201219
  Receipt Date: 20201219
  Transmission Date: 20210114
  Serious: Yes (Other)
  Sender: FDA-Public Use
  Company Number: None

PATIENT
  Age: 72 Year
  Sex: Female
  Weight: 94.5 kg

DRUGS (13)
  1. PANTOPRAZOLE [Concomitant]
     Active Substance: PANTOPRAZOLE
  2. DEXAMETHASONE. [Concomitant]
     Active Substance: DEXAMETHASONE
  3. KEPPRA [Concomitant]
     Active Substance: LEVETIRACETAM
  4. LIPITOR [Concomitant]
     Active Substance: ATORVASTATIN CALCIUM
  5. BACTRIM [Concomitant]
     Active Substance: SULFAMETHOXAZOLE\TRIMETHOPRIM
  6. HYDROCORTISONE. [Concomitant]
     Active Substance: HYDROCORTISONE
  7. COMPAZINE [Concomitant]
     Active Substance: PROCHLORPERAZINE MALEATE
  8. TEMOZOLOMIDE. [Suspect]
     Active Substance: TEMOZOLOMIDE
     Indication: BRAIN CANCER METASTATIC
     Dates: start: 20200912
  9. ALOE VERA [Concomitant]
     Active Substance: ALOE VERA LEAF
  10. MARIJUANA [Concomitant]
     Active Substance: CANNABIS SATIVA SUBSP. INDICA TOP
  11. MULTIVITAMIN [Concomitant]
     Active Substance: VITAMINS
  12. BLACK SEED OIL [Concomitant]
  13. TEMOZOLOMIDE. [Suspect]
     Active Substance: TEMOZOLOMIDE
     Indication: BRAIN CANCER METASTATIC
     Dates: start: 20201120

REACTIONS (1)
  - Hospice care [None]

NARRATIVE: CASE EVENT DATE: 20201218
